FAERS Safety Report 9266532 (Version 1)
Quarter: 2013Q2

REPORT INFORMATION
  Report Type: Spontaneous
  Country: US (occurrence: US)
  Receive Date: 20130502
  Receipt Date: 20130502
  Transmission Date: 20140414
  Serious: Yes (Other)
  Sender: FDA-Public Use
  Company Number: 2013SP001225

PATIENT
  Sex: Male

DRUGS (2)
  1. BROVANA [Suspect]
     Indication: PRODUCT USED FOR UNKNOWN INDICATION
     Route: 055
  2. ALL OTHER THERAPEUTIC PRODUCTS [Concomitant]
     Indication: SKIN CANCER

REACTIONS (4)
  - Skin cancer [Not Recovered/Not Resolved]
  - Dizziness [Not Recovered/Not Resolved]
  - Nausea [Not Recovered/Not Resolved]
  - Incorrect route of drug administration [None]
